FAERS Safety Report 9029029 (Version 1)
Quarter: 2013Q1

REPORT INFORMATION
  Report Type: Spontaneous
  Country: US (occurrence: US)
  Receive Date: 20130122
  Receipt Date: 20130122
  Transmission Date: 20140127
  Serious: No
  Sender: FDA-Public Use
  Company Number: US-B.I. PHARMACEUTICALS,INC./RIDGEFIELD-2013-BI-00788BP

PATIENT
  Sex: Female
  Weight: 95 kg

DRUGS (14)
  1. SPIRIVA [Suspect]
     Indication: CHRONIC OBSTRUCTIVE PULMONARY DISEASE
     Dosage: 18 MCG
     Route: 055
     Dates: start: 201301
  2. ASOCOL [Concomitant]
     Dosage: 1600 MG
     Route: 048
  3. LEVOTHYROXINE [Concomitant]
     Dosage: 25 MG
     Route: 048
  4. OXYCODONE [Concomitant]
     Route: 048
  5. VANCOMYCIN [Concomitant]
     Route: 042
  6. ROCEPHIN [Concomitant]
     Route: 042
  7. SIMVASTATIN [Concomitant]
     Dosage: 40 MG
     Route: 048
  8. DEXILANT [Concomitant]
     Dosage: 60 MG
     Route: 048
  9. PROAIR [Concomitant]
     Route: 055
  10. ZOFIRLUKAST [Concomitant]
     Dosage: 40 MG
     Route: 048
  11. LIOTHYRONINE [Concomitant]
     Dosage: 5 MG
     Route: 048
  12. BENICAR [Concomitant]
     Dosage: 20 MG
     Route: 048
  13. DIAZEPAM [Concomitant]
     Dosage: 15 MG
     Route: 048
  14. ASTELIN [Concomitant]
     Route: 045

REACTIONS (2)
  - Nausea [Recovered/Resolved]
  - Dizziness [Recovered/Resolved]
